FAERS Safety Report 6976033-8 (Version None)
Quarter: 2010Q3

REPORT INFORMATION
  Report Type: 
  Country: None (occurrence: None)
  Receive Date: 20100910
  Receipt Date: 20100903
  Transmission Date: 20110219
  Serious: Yes (Hospitalization, Disabling, Other)
  Sender: FDA-Public Use
  Company Number: CHPA2010US14252

PATIENT
  Sex: Female

DRUGS (1)
  1. KERI ORIGINAL (NCH) [Suspect]
     Dosage: UNK, UNK

REACTIONS (2)
  - DISABILITY [None]
  - HIP SURGERY [None]
